FAERS Safety Report 16485762 (Version 4)
Quarter: 2019Q3

REPORT INFORMATION
  Report Type: Spontaneous
  Country: US (occurrence: US)
  Receive Date: 20190627
  Receipt Date: 20190830
  Transmission Date: 20191004
  Serious: No
  Sender: FDA-Public Use
  Company Number: US-SA-2019SA174787

PATIENT
  Age: 43 Year
  Sex: Male

DRUGS (1)
  1. KEVZARA [Suspect]
     Active Substance: SARILUMAB
     Dosage: 200 MG, QOW
     Route: 058
     Dates: start: 201905, end: 2019

REACTIONS (7)
  - Injection site swelling [Unknown]
  - Injection site pain [Unknown]
  - Skin infection [Unknown]
  - Limb injury [Recovered/Resolved]
  - Localised infection [Recovered/Resolved]
  - Injection site erythema [Unknown]
  - Malaise [Unknown]

NARRATIVE: CASE EVENT DATE: 2019
